FAERS Safety Report 17654547 (Version 1)
Quarter: 2020Q2

REPORT INFORMATION
  Report Type: Spontaneous
  Country: US (occurrence: US)
  Receive Date: 20200410
  Receipt Date: 20200410
  Transmission Date: 20200713
  Serious: Yes (Other)
  Sender: FDA-Public Use
  Company Number: US-HIKMA PHARMACEUTICALS USA INC.-US-H14001-20-01730

PATIENT
  Age: 56 Year
  Sex: Female

DRUGS (2)
  1. JAKAFI [Suspect]
     Active Substance: RUXOLITINIB
     Indication: MYELOFIBROSIS
     Route: 048
     Dates: start: 20180417
  2. PREDNISONE. [Suspect]
     Active Substance: PREDNISONE
     Indication: PRODUCT USED FOR UNKNOWN INDICATION
     Route: 065

REACTIONS (20)
  - White blood cell count decreased [Recovered/Resolved]
  - Scab [Recovered/Resolved]
  - Cough [Recovered/Resolved]
  - Furuncle [Recovering/Resolving]
  - Body temperature increased [Recovering/Resolving]
  - Bone pain [Unknown]
  - General physical health deterioration [Unknown]
  - Platelet count decreased [Recovered/Resolved]
  - Upper respiratory tract infection [Unknown]
  - Muscle spasms [Unknown]
  - Contusion [Unknown]
  - Ear disorder [Recovered/Resolved]
  - Ear infection [Unknown]
  - Gout [Unknown]
  - Influenza [Unknown]
  - Sinus disorder [Unknown]
  - Blood cholesterol increased [Unknown]
  - Energy increased [Unknown]
  - Platelet count increased [Recovered/Resolved]
  - Sinus congestion [Recovering/Resolving]
